FAERS Safety Report 19577783 (Version 3)
Quarter: 2021Q3

REPORT INFORMATION
  Report Type: Other
  Country: PE (occurrence: PE)
  Receive Date: 20210719
  Receipt Date: 20210914
  Transmission Date: 20211014
  Serious: Yes (Other)
  Sender: FDA-Public Use
  Company Number: PE-ROCHE-2844854

PATIENT
  Age: 48 Year
  Sex: Female

DRUGS (2)
  1. ACTEMRA [Suspect]
     Active Substance: TOCILIZUMAB
     Indication: RHEUMATOID ARTHRITIS
     Route: 058
     Dates: start: 20161130
  2. MEDROL [Concomitant]
     Active Substance: METHYLPREDNISOLONE
     Indication: RHEUMATOID ARTHRITIS
     Dosage: DOSE AND FREQUENCY WERE NOT REPORTED

REACTIONS (14)
  - Headache [Unknown]
  - Transaminases increased [Not Recovered/Not Resolved]
  - Pain in extremity [Unknown]
  - COVID-19 [Unknown]
  - Ill-defined disorder [Unknown]
  - Hyperlipidaemia [Unknown]
  - Pain [Unknown]
  - Arthralgia [Unknown]
  - Blood triglycerides increased [Not Recovered/Not Resolved]
  - Fatigue [Unknown]
  - Hepatic steatosis [Not Recovered/Not Resolved]
  - Musculoskeletal stiffness [Unknown]
  - Hepatitis [Unknown]
  - Hepatomegaly [Unknown]

NARRATIVE: CASE EVENT DATE: 202102
